FAERS Safety Report 5915006-0 (Version None)
Quarter: 2008Q4

REPORT INFORMATION
  Report Type: 
  Country: None (occurrence: None)
  Receive Date: 20081008
  Receipt Date: 20080904
  Transmission Date: 20090506
  Serious: Yes (Hospitalization)
  Sender: FDA-Public Use
  Company Number: 2008S1008885

PATIENT
  Age: 3 Month

DRUGS (1)
  1. SODIUM PHOSPHATES [Suspect]
     Indication: UROGRAM
     Dosage: 90 ML; 169; PO
     Route: 048

REACTIONS (1)
  - DEHYDRATION [None]
